FAERS Safety Report 10866508 (Version 1)
Quarter: 2015Q1

REPORT INFORMATION
  Report Type: Spontaneous
  Country: US (occurrence: None)
  Receive Date: 20150220
  Receipt Date: 20150220
  Transmission Date: 20150721
  Serious: Yes (Disabling)
  Sender: FDA-Public Use
  Company Number: None

PATIENT
  Age: 73 Year
  Sex: Female

DRUGS (1)
  1. HERCEPTIN [Suspect]
     Active Substance: TRASTUZUMAB
     Indication: BREAST CANCER STAGE III
     Dates: start: 20130717, end: 20141008

REACTIONS (6)
  - Cough [None]
  - Weight decreased [None]
  - Dizziness postural [None]
  - Parosmia [None]
  - Paranasal sinus hypersecretion [None]
  - Dyspnoea [None]
